FAERS Safety Report 9712648 (Version 2)
Quarter: 2014Q1

REPORT INFORMATION
  Report Type: Report from Study
  Country: IT (occurrence: IT)
  Receive Date: 20131126
  Receipt Date: 20140124
  Transmission Date: 20141002
  Serious: Yes (Hospitalization)
  Sender: FDA-Public Use
  Company Number: PHHO2013IT015287

PATIENT
  Sex: 0

DRUGS (6)
  1. NEORAL [Suspect]
     Indication: RENAL TRANSPLANT
     Dosage: 175 MG, UNK
     Route: 048
     Dates: start: 20120921, end: 20121220
  2. CERTICAN [Suspect]
     Indication: RENAL TRANSPLANT
     Dosage: 1.25 MG, UNK
     Route: 048
     Dates: start: 20120921
  3. MEDROL [Concomitant]
     Indication: PROPHYLAXIS AGAINST TRANSPLANT REJECTION
     Dosage: 4 MG, UNK
     Dates: start: 20120920
  4. DILATREND [Concomitant]
     Indication: ISCHAEMIC CARDIOMYOPATHY
     Dosage: 12.5 MG, UNK
     Dates: start: 20120920
  5. CARDIO ASPIRIN [Concomitant]
     Indication: ISCHAEMIC CARDIOMYOPATHY
     Dosage: 100 MG, UNK
     Dates: start: 20121001
  6. LANSOX [Concomitant]
     Indication: GASTRITIS
     Dosage: 30 MG, UNK
     Dates: start: 20120920

REACTIONS (2)
  - Ataxia [Recovered/Resolved]
  - Tremor [Recovered/Resolved]
